FAERS Safety Report 9777555 (Version 1)
Quarter: 2013Q4

REPORT INFORMATION
  Report Type: Spontaneous
  Country: US (occurrence: US)
  Receive Date: 20131222
  Receipt Date: 20131222
  Transmission Date: 20140711
  Serious: No
  Sender: FDA-Public Use
  Company Number: US-009507513-1312USA008370

PATIENT
  Sex: Male

DRUGS (2)
  1. CLARITIN LIQUIGELS [Suspect]
     Indication: LACRIMATION INCREASED
     Dosage: 10 MG, ONCE
     Route: 048
     Dates: start: 20131209
  2. CLARITIN LIQUIGELS [Suspect]
     Indication: RHINORRHOEA

REACTIONS (1)
  - Drug ineffective [Unknown]
